FAERS Safety Report 4962543-1 (Version None)
Quarter: 2006Q1

REPORT INFORMATION
  Report Type: 
  Country: None (occurrence: None)
  Receive Date: 20060201
  Receipt Date: 20051119
  Transmission Date: 20060701
  Serious: No
  Sender: FDA-Public Use
  Company Number: 2005PV004561

PATIENT
  Age: 58 Year
  Sex: Female
  Weight: 90.7194 kg

DRUGS (10)
  1. BYETTA [Suspect]
     Indication: GLUCOSE TOLERANCE IMPAIRED
     Dosage: 5 MCG, BID, SC
     Route: 058
     Dates: start: 20051027, end: 20051119
  2. BYETTA [Suspect]
     Indication: GLUCOSE TOLERANCE IMPAIRED
     Dosage: 5 MCG, BID, SC
     Route: 058
     Dates: start: 20051207
  3. HYZAAR [Concomitant]
  4. TRICOR [Concomitant]
  5. TOPROL-XL [Concomitant]
  6. DICLOFENAC SODIUM [Concomitant]
  7. MOBIC [Concomitant]
  8. PROGESTERONE [Concomitant]
  9. ALLEGRA [Concomitant]
  10. ESTRASORB [Concomitant]

REACTIONS (4)
  - INJECTION SITE BRUISING [None]
  - INJECTION SITE ERYTHEMA [None]
  - INJECTION SITE PAIN [None]
  - INJECTION SITE PRURITUS [None]
